FAERS Safety Report 19849306 (Version 1)
Quarter: 2021Q3

REPORT INFORMATION
  Report Type: Spontaneous
  Country: ES (occurrence: ES)
  Receive Date: 20210917
  Receipt Date: 20210917
  Transmission Date: 20211014
  Serious: Yes (Death, Other)
  Sender: FDA-Public Use
  Company Number: ES-ABBVIE-21K-144-4083799-00

PATIENT

DRUGS (3)
  1. IMBRUVICA [Suspect]
     Active Substance: IBRUTINIB
     Indication: WALDENSTROM^S MACROGLOBULINAEMIA
  2. IMBRUVICA [Suspect]
     Active Substance: IBRUTINIB
     Indication: MANTLE CELL LYMPHOMA
  3. IMBRUVICA [Suspect]
     Active Substance: IBRUTINIB
     Indication: CHRONIC LYMPHOCYTIC LEUKAEMIA
     Route: 048

REACTIONS (16)
  - Campylobacter infection [Unknown]
  - Infection [Fatal]
  - Klebsiella infection [Unknown]
  - Encephalitis [Unknown]
  - Haemophilus infection [Unknown]
  - Lung neoplasm [Fatal]
  - Urinary tract infection enterococcal [Unknown]
  - Cellulitis streptococcal [Unknown]
  - Subdural haematoma [Unknown]
  - Pancytopenia [Unknown]
  - Haemorrhage [Fatal]
  - Hyponatraemia [Unknown]
  - Atrial fibrillation [Unknown]
  - Varicella zoster virus infection [Unknown]
  - Herpes zoster meningoencephalitis [Unknown]
  - Oedema [Unknown]
